FAERS Safety Report 14552205 (Version 1)
Quarter: 2018Q1

REPORT INFORMATION
  Report Type: Spontaneous
  Country: US (occurrence: US)
  Receive Date: 20180216
  Receipt Date: 20180216
  Transmission Date: 20180509
  Serious: Yes (Death)
  Sender: FDA-Public Use
  Company Number: None

PATIENT
  Age: 88 Year
  Sex: Female

DRUGS (1)
  1. SENSIPAR [Suspect]
     Active Substance: CINACALCET HYDROCHLORIDE
     Indication: CARDIAC DISORDER
     Dosage: 1 TABLET AFTER DIALYSIS
     Route: 048
     Dates: start: 20180126, end: 20180205

REACTIONS (1)
  - Death [None]

NARRATIVE: CASE EVENT DATE: 20180205
